FAERS Safety Report 17656128 (Version 1)
Quarter: 2020Q2

REPORT INFORMATION
  Report Type: Spontaneous
  Country: US (occurrence: US)
  Receive Date: 20200410
  Receipt Date: 20200410
  Transmission Date: 20200713
  Serious: No
  Sender: FDA-Public Use
  Company Number: US-BAUSCH-BL-2020-008391

PATIENT
  Age: 44 Year
  Sex: Female

DRUGS (1)
  1. JUBLIA [Suspect]
     Active Substance: EFINACONAZOLE
     Indication: ONYCHOMYCOSIS
     Dosage: NEW BOTTLE
     Route: 061
     Dates: start: 20200313

REACTIONS (4)
  - Product dropper issue [Unknown]
  - Extra dose administered [Unknown]
  - Accidental exposure to product [Unknown]
  - Onychomadesis [Unknown]

NARRATIVE: CASE EVENT DATE: 202003
